FAERS Safety Report 7233155-4 (Version None)
Quarter: 2011Q1

REPORT INFORMATION
  Report Type: 
  Country: None (occurrence: None)
  Receive Date: 20110107
  Receipt Date: 20101230
  Transmission Date: 20110831
  Serious: Yes (Death, Life-Threatening)
  Sender: FDA-Public Use
  Company Number: 0215759

PATIENT
  Age: 67 Year
  Sex: Male

DRUGS (4)
  1. PIPERACILLIN AND TAZOBACTAM [Concomitant]
  2. TACHOSIL [Suspect]
     Dates: start: 20100530, end: 20100530
  3. URBAN [Concomitant]
  4. HUMULIN (NOVOLIN 20/80) [Concomitant]

REACTIONS (1)
  - RESPIRATORY FAILURE [None]
